FAERS Safety Report 5509805-7 (Version None)
Quarter: 2007Q4

REPORT INFORMATION
  Report Type: 
  Country: None (occurrence: None)
  Receive Date: 20071026
  Receipt Date: 20070927
  Transmission Date: 20080405
  Serious: Yes (Hospitalization)
  Sender: FDA-Public Use
  Company Number: CLOF-10678

PATIENT
  Age: 54 Year
  Sex: Female

DRUGS (17)
  1. CLOFARABINE. MFR: GENZYME [Suspect]
     Indication: MYELODYSPLASTIC SYNDROME
     Dosage: 30 MG/M2 QD X 3 PO
     Route: 048
     Dates: start: 20070920
  2. AMBIEN [Concomitant]
  3. CIPROFLOXACIN HCL [Concomitant]
  4. CYMBALTA [Concomitant]
  5. LACTULOSE [Concomitant]
  6. LYRICA [Concomitant]
  7. METOPROLOL [Concomitant]
  8. MIRALAX [Concomitant]
  9. NEUPOGEN [Concomitant]
  10. NEXIUM [Concomitant]
  11. RAGLAN [Concomitant]
  12. SENOKOT [Concomitant]
  13. TRAMADOL HCL [Concomitant]
  14. VALIUM [Concomitant]
  15. VICODIN [Concomitant]
  16. VORICONAZOLE [Concomitant]
  17. K-DUR 10 [Concomitant]

REACTIONS (2)
  - PNEUMONIA [None]
  - SUPRAVENTRICULAR TACHYCARDIA [None]
